FAERS Safety Report 4335400-1 (Version None)
Quarter: 2004Q2

REPORT INFORMATION
  Report Type: 
  Country: None (occurrence: None)
  Receive Date: 20040409
  Receipt Date: 20031224
  Transmission Date: 20050107
  Serious: Yes (Other)
  Sender: FDA-Public Use
  Company Number: 12464707

PATIENT
  Age: 5 Year
  Sex: Male

DRUGS (3)
  1. PARAPLATIN [Suspect]
     Indication: MEDULLOBLASTOMA
     Route: 042
  2. VP-16 [Suspect]
     Indication: MEDULLOBLASTOMA
     Route: 042
  3. RANIMUSTINE [Suspect]
     Indication: MEDULLOBLASTOMA
     Route: 042

REACTIONS (10)
  - ALANINE AMINOTRANSFERASE INCREASED [None]
  - ASPARTATE AMINOTRANSFERASE INCREASED [None]
  - COUGH [None]
  - ENGRAFTMENT SYNDROME [None]
  - FACE OEDEMA [None]
  - HYPOTHYROIDISM [None]
  - OEDEMA PERIPHERAL [None]
  - PYREXIA [None]
  - RASH [None]
  - VOMITING [None]
